FAERS Safety Report 16350934 (Version 1)
Quarter: 2019Q2

REPORT INFORMATION
  Report Type: Spontaneous
  Country: US (occurrence: US)
  Receive Date: 20190524
  Receipt Date: 20190524
  Transmission Date: 20190711
  Serious: Yes (Death, Hospitalization)
  Sender: FDA-Public Use
  Company Number: US-IPSEN BIOPHARMACEUTICALS, INC.-2019-08095

PATIENT
  Age: 83 Year
  Sex: Male
  Weight: 72.57 kg

DRUGS (17)
  1. PAROXETINE. [Concomitant]
     Active Substance: PAROXETINE
  2. FLOMAX [Concomitant]
     Active Substance: TAMSULOSIN HYDROCHLORIDE
  3. LOSARTAN. [Concomitant]
     Active Substance: LOSARTAN
  4. NEURONTIN [Concomitant]
     Active Substance: GABAPENTIN
  5. AMLODIPINE [Concomitant]
     Active Substance: AMLODIPINE BESYLATE
  6. SOMATULINE DEPOT [Suspect]
     Active Substance: LANREOTIDE ACETATE
     Indication: PANCREATIC NEUROENDOCRINE TUMOUR
     Dosage: ROTATING SIDES BETWEEN DIFFERENT SIDES OF BUTTOCKS
     Route: 058
     Dates: start: 20150911
  7. FERROUS SULFATE. [Concomitant]
     Active Substance: FERROUS SULFATE
  8. DILTIAZEM 120 [Concomitant]
  9. TAMSULOSIN [Concomitant]
     Active Substance: TAMSULOSIN
  10. COLACE [Concomitant]
     Active Substance: DOCUSATE SODIUM
  11. LASIX [Concomitant]
     Active Substance: FUROSEMIDE
  12. ZOFRAN [Concomitant]
     Active Substance: ONDANSETRON HYDROCHLORIDE
  13. VITAMIN D3 [Concomitant]
     Active Substance: CHOLECALCIFEROL
  14. SIMVASTATIN. [Concomitant]
     Active Substance: SIMVASTATIN
  15. REGULAR INSULIN [Concomitant]
     Active Substance: INSULIN NOS
  16. GLIPIZIDE. [Concomitant]
     Active Substance: GLIPIZIDE
  17. FINASTERIDE. [Concomitant]
     Active Substance: FINASTERIDE

REACTIONS (3)
  - Vertebral wedging [Unknown]
  - Ascites [Unknown]
  - Disease progression [Fatal]

NARRATIVE: CASE EVENT DATE: 20190426
